FAERS Safety Report 5630736-6 (Version None)
Quarter: 2008Q1

REPORT INFORMATION
  Report Type: 
  Country: None (occurrence: None)
  Receive Date: 20080219
  Receipt Date: 20080212
  Transmission Date: 20080703
  Serious: Yes (Hospitalization)
  Sender: FDA-Public Use
  Company Number: CO-JNJFOC-20080202800

PATIENT
  Age: 19 Year
  Sex: Female

DRUGS (1)
  1. RISPERDAL [Suspect]
     Indication: MAJOR DEPRESSION
     Route: 048

REACTIONS (5)
  - DEPRESSION [None]
  - GALACTORRHOEA [None]
  - HYPERPROLACTINAEMIA [None]
  - MENORRHAGIA [None]
  - SUICIDE ATTEMPT [None]
